FAERS Safety Report 19397582 (Version 2)
Quarter: 2021Q4

REPORT INFORMATION
  Report Type: Report from Study
  Country: US (occurrence: US)
  Receive Date: 20210609
  Receipt Date: 20211220
  Transmission Date: 20220304
  Serious: Yes (Other)
  Sender: FDA-Public Use
  Company Number: US-ABBVIE-21K-163-3938154-00

PATIENT
  Age: 78 Year
  Sex: Male

DRUGS (1)
  1. IMBRUVICA [Suspect]
     Active Substance: IBRUTINIB
     Indication: Chronic lymphocytic leukaemia
     Route: 048

REACTIONS (2)
  - Coronary artery bypass [Recovered/Resolved]
  - Oesophageal carcinoma [Unknown]

NARRATIVE: CASE EVENT DATE: 20210401
